FAERS Safety Report 10301534 (Version 1)
Quarter: 2014Q3

REPORT INFORMATION
  Report Type: Spontaneous
  Country: US (occurrence: None)
  Receive Date: 20140709
  Receipt Date: 20140709
  Transmission Date: 20150326
  Serious: Yes (Other)
  Sender: FDA-Public Use
  Company Number: None

PATIENT

DRUGS (1)
  1. METHYLPHENIDATE ER [Suspect]
     Active Substance: METHYLPHENIDATE

REACTIONS (6)
  - Headache [None]
  - Dyspnoea [None]
  - Mood altered [None]
  - Product substitution issue [None]
  - Blood pressure increased [None]
  - Muscular weakness [None]

NARRATIVE: CASE EVENT DATE: 20140707
